FAERS Safety Report 21924478 (Version 5)
Quarter: 2024Q4

REPORT INFORMATION
  Report Type: Report from Study
  Country: US (occurrence: US)
  Receive Date: 20230130
  Receipt Date: 20241120
  Transmission Date: 20250114
  Serious: Yes (Other)
  Sender: TAKEDA
  Company Number: US-TAKEDA-US202033077

PATIENT
  Sex: Female

DRUGS (2)
  1. HUMAN IMMUNOGLOBULIN G [Suspect]
     Active Substance: HUMAN IMMUNOGLOBULIN G
     Indication: Primary immunodeficiency syndrome
     Dosage: UNK
  2. HUMAN IMMUNOGLOBULIN G [Suspect]
     Active Substance: HUMAN IMMUNOGLOBULIN G
     Indication: Immunodeficiency common variable

REACTIONS (19)
  - Breast cancer [Unknown]
  - Headache [Unknown]
  - Menopause [Unknown]
  - Dyspepsia [Unknown]
  - Gastrointestinal disorder [Unknown]
  - Weight increased [Unknown]
  - COVID-19 [Recovered/Resolved]
  - Breast mass [Unknown]
  - Tinea pedis [Unknown]
  - Gastrointestinal microorganism overgrowth [Unknown]
  - Respiratory tract congestion [Unknown]
  - Brain fog [Recovered/Resolved]
  - Sinusitis [Unknown]
  - Pain [Unknown]
  - Asthenia [Unknown]
  - Influenza like illness [Recovering/Resolving]
  - Abdominal pain upper [Unknown]
  - Cough [Unknown]
  - Fatigue [Unknown]
